FAERS Safety Report 6100674-3 (Version None)
Quarter: 2009Q1

REPORT INFORMATION
  Report Type: 
  Country: None (occurrence: None)
  Receive Date: 20090303
  Receipt Date: 20090218
  Transmission Date: 20090719
  Serious: Yes (Hospitalization, Other)
  Sender: FDA-Public Use
  Company Number: PHHY2009NZ05953

PATIENT
  Sex: Male

DRUGS (1)
  1. CLOZARIL [Suspect]
     Dosage: 275 MG, QD
     Route: 048

REACTIONS (4)
  - BREATH ODOUR [None]
  - CONSTIPATION [None]
  - ENEMA ADMINISTRATION [None]
  - SIGMOIDOSCOPY [None]
